FAERS Safety Report 16634651 (Version 1)
Quarter: 2019Q3

REPORT INFORMATION
  Report Type: Spontaneous
  Country: IN (occurrence: IN)
  Receive Date: 20190726
  Receipt Date: 20190726
  Transmission Date: 20191004
  Serious: Yes (Other)
  Sender: FDA-Public Use
  Company Number: IN-MACLEODS PHARMACEUTICALS US LTD-MAC2019022231

PATIENT

DRUGS (1)
  1. TRIAMCINOLONE [Suspect]
     Active Substance: TRIAMCINOLONE
     Indication: ACARODERMATITIS
     Dosage: INJECTION, UNK, QD
     Route: 030

REACTIONS (2)
  - Lipodystrophy acquired [Not Recovered/Not Resolved]
  - Injection site atrophy [Not Recovered/Not Resolved]
